FAERS Safety Report 16513675 (Version 2)
Quarter: 2019Q3

REPORT INFORMATION
  Report Type: Spontaneous
  Country: TH (occurrence: TH)
  Receive Date: 20190701
  Receipt Date: 20190711
  Transmission Date: 20191004
  Serious: Yes (Other)
  Sender: FDA-Public Use
  Company Number: TH-VIFOR (INTERNATIONAL) INC.-VIT-2019-06377

PATIENT
  Age: 45 Year
  Sex: Female

DRUGS (14)
  1. MIRCERA [Suspect]
     Active Substance: METHOXY POLYETHYLENE GLYCOL-EPOETIN BETA
     Route: 065
     Dates: start: 20180116
  2. DOXAZOSIN [Concomitant]
     Active Substance: DOXAZOSIN MESYLATE
  3. CLONIDINE. [Concomitant]
     Active Substance: CLONIDINE
     Dates: start: 20180319
  4. LASIX [Concomitant]
     Active Substance: FUROSEMIDE
     Dates: start: 20181008
  5. MIRCERA [Suspect]
     Active Substance: METHOXY POLYETHYLENE GLYCOL-EPOETIN BETA
     Route: 065
     Dates: start: 20180514
  6. MIRCERA [Suspect]
     Active Substance: METHOXY POLYETHYLENE GLYCOL-EPOETIN BETA
     Route: 065
     Dates: start: 20181008
  7. CARVEDILOL. [Concomitant]
     Active Substance: CARVEDILOL
     Dates: start: 20170331
  8. MIRCERA [Suspect]
     Active Substance: METHOXY POLYETHYLENE GLYCOL-EPOETIN BETA
     Indication: PRODUCT USED FOR UNKNOWN INDICATION
     Route: 065
     Dates: start: 20170603
  9. MIRCERA [Suspect]
     Active Substance: METHOXY POLYETHYLENE GLYCOL-EPOETIN BETA
     Route: 065
     Dates: start: 20180709
  10. MIRCERA [Suspect]
     Active Substance: METHOXY POLYETHYLENE GLYCOL-EPOETIN BETA
     Route: 065
     Dates: start: 20181203
  11. CANDESARTAN. [Concomitant]
     Active Substance: CANDESARTAN
     Dates: end: 20180319
  12. MANIDIPINE [Concomitant]
     Active Substance: MANIDIPINE
  13. MIRCERA [Suspect]
     Active Substance: METHOXY POLYETHYLENE GLYCOL-EPOETIN BETA
     Route: 065
     Dates: start: 20180319
  14. MIRCERA [Suspect]
     Active Substance: METHOXY POLYETHYLENE GLYCOL-EPOETIN BETA
     Route: 065
     Dates: start: 20171121

REACTIONS (1)
  - Procedural haemorrhage [Unknown]

NARRATIVE: CASE EVENT DATE: 20181203
